FAERS Safety Report 5726269-9 (Version None)
Quarter: 2008Q2

REPORT INFORMATION
  Report Type: 
  Country: None (occurrence: None)
  Receive Date: 20080501
  Receipt Date: 20080501
  Transmission Date: 20081010
  Serious: Yes (Other)
  Sender: FDA-Public Use
  Company Number: None

PATIENT
  Sex: Male
  Weight: 83.9154 kg

DRUGS (1)
  1. EFFEXOR XR [Suspect]
     Indication: DEPRESSION
     Dosage: 1 37.5 MG CAPSULE ONCE DAILY PO
     Route: 048
     Dates: start: 20080421, end: 20080427

REACTIONS (5)
  - ANGER [None]
  - HEART RATE INCREASED [None]
  - MENTAL DISORDER [None]
  - NEGATIVISM [None]
  - SUICIDAL IDEATION [None]
